FAERS Safety Report 6193431-3 (Version None)
Quarter: 2009Q2

REPORT INFORMATION
  Report Type: 
  Country: None (occurrence: None)
  Receive Date: 20090518
  Receipt Date: 20081118
  Transmission Date: 20091009
  Serious: No
  Sender: FDA-Public Use
  Company Number: US-ABBOTT-08P-163-0488756-00

PATIENT
  Sex: Female

DRUGS (2)
  1. AZMACORT [Suspect]
     Indication: ASTHMA
     Dosage: UNKNOWN
     Dates: start: 20081001, end: 20081101
  2. TIOTROPIUM BROMIDE [Concomitant]
     Indication: ASTHMA

REACTIONS (2)
  - DRUG INEFFECTIVE [None]
  - EXPIRED DRUG ADMINISTERED [None]
